FAERS Safety Report 6295029-5 (Version None)
Quarter: 2009Q3

REPORT INFORMATION
  Report Type: 
  Country: None (occurrence: None)
  Receive Date: 20090803
  Receipt Date: 20090729
  Transmission Date: 20100115
  Serious: Yes (Hospitalization)
  Sender: FDA-Public Use
  Company Number: US-BRISTOL-MYERS SQUIBB COMPANY-14721302

PATIENT
  Age: 65 Year
  Sex: Male

DRUGS (8)
  1. CISPLATIN [Suspect]
     Indication: METASTATIC CARCINOMA OF THE BLADDER
     Dosage: 70 MG/M2 28APR-26MAY09;DOSE REDUCED ON 23JUN2009;LAST DOSE OF C4 DAY 1 ON 21JUL09
     Route: 042
     Dates: start: 20090428
  2. GEMZAR [Suspect]
     Indication: METASTATIC CARCINOMA OF THE BLADDER
     Dosage: 1000 MG/M2 28APR09-09JUN09;DOSE REDUCED ON 23JUN09; LAST DOSE OF C4 AND DAY 1 ON 21JUL09DAY 1,8,15
     Route: 042
     Dates: start: 20090428
  3. DILANTIN [Concomitant]
  4. PHENOBARBITAL [Concomitant]
  5. LORAZEPAM [Concomitant]
  6. ALEVE [Concomitant]
  7. COMPAZINE [Concomitant]
  8. ARIXTRA [Concomitant]

REACTIONS (2)
  - DEHYDRATION [None]
  - ORTHOSTATIC HYPOTENSION [None]
